FAERS Safety Report 5668828-8 (Version None)
Quarter: 2008Q1

REPORT INFORMATION
  Report Type: 
  Country: None (occurrence: None)
  Receive Date: 20080317
  Receipt Date: 20080213
  Transmission Date: 20080703
  Serious: No
  Sender: FDA-Public Use
  Company Number: US-BAYER-200814431NA

PATIENT
  Age: 25 Year
  Sex: Female
  Weight: 72 kg

DRUGS (3)
  1. YAZ [Suspect]
     Indication: CONTRACEPTION
     Route: 048
     Dates: start: 20071101
  2. TOPAMAX [Concomitant]
     Route: 048
  3. FOLIC ACID [Concomitant]
     Route: 048

REACTIONS (1)
  - METRORRHAGIA [None]
